FAERS Safety Report 9084981 (Version 1)
Quarter: 2013Q1

REPORT INFORMATION
  Report Type: Spontaneous
  Country: GB (occurrence: GB)
  Receive Date: 20130130
  Receipt Date: 20130130
  Transmission Date: 20140127
  Serious: Yes (Other)
  Sender: FDA-Public Use
  Company Number: PHFR2013GB000862

PATIENT
  Age: 53 Year
  Sex: Female

DRUGS (2)
  1. TRILEPTAL [Suspect]
     Indication: TRIGEMINAL NEURALGIA
     Dosage: 600 MG, DAILY
  2. PREGABALIN [Concomitant]

REACTIONS (2)
  - Osteoporosis [Unknown]
  - Bone density decreased [Unknown]
